FAERS Safety Report 8616422-9 (Version None)
Quarter: 2012Q3

REPORT INFORMATION
  Report Type: 
  Country: None (occurrence: None)
  Receive Date: 20120823
  Receipt Date: 20120814
  Transmission Date: 20120928
  Serious: Yes (Other)
  Sender: FDA-Public Use
  Company Number: CHPA2012US018152

PATIENT
  Age: 47 Year
  Sex: Female

DRUGS (1)
  1. BENEFIBER STICK PACKS [Suspect]
     Indication: CONSTIPATION
     Dosage: 1 DF, QD
     Route: 048

REACTIONS (4)
  - THERAPEUTIC RESPONSE UNEXPECTED [None]
  - OFF LABEL USE [None]
  - DRUG DEPENDENCE [None]
  - CONSTIPATION [None]
